FAERS Safety Report 21388606 (Version 2)
Quarter: 2022Q4

REPORT INFORMATION
  Report Type: Spontaneous
  Country: US (occurrence: None)
  Receive Date: 20220928
  Receipt Date: 20221102
  Transmission Date: 20230112
  Serious: No
  Sender: FDA-Public Use
  Company Number: 2022A308166

PATIENT
  Age: 53 Year
  Sex: Male
  Weight: 157.9 kg

DRUGS (1)
  1. BYDUREON BCISE [Suspect]
     Active Substance: EXENATIDE
     Indication: Diabetes mellitus management
     Dosage: 2 MG/0.85 ML
     Route: 058
     Dates: start: 20220518, end: 20220902

REACTIONS (1)
  - Injection site scar [Not Recovered/Not Resolved]
